FAERS Safety Report 5832573-6 (Version None)
Quarter: 2008Q3

REPORT INFORMATION
  Report Type: 
  Country: None (occurrence: None)
  Receive Date: 20080731
  Receipt Date: 20080724
  Transmission Date: 20090109
  Serious: Yes (Other)
  Sender: FDA-Public Use
  Company Number: 2008SP015304

PATIENT
  Age: 59 Year
  Sex: Female

DRUGS (2)
  1. INTRON A [Suspect]
     Indication: MALIGNANT MELANOMA
     Dosage: 10 MIU
     Dates: end: 20080710
  2. AROPAX [Concomitant]

REACTIONS (4)
  - OEDEMA PERIPHERAL [None]
  - PAIN IN EXTREMITY [None]
  - POLLAKIURIA [None]
  - URINARY INCONTINENCE [None]
